FAERS Safety Report 24938164 (Version 1)
Quarter: 2025Q1

REPORT INFORMATION
  Report Type: Report from Study
  Country: CA (occurrence: CA)
  Receive Date: 20250206
  Receipt Date: 20250206
  Transmission Date: 20250408
  Serious: Yes (Other)
  Sender: TAKEDA
  Company Number: CA-TAKEDA-2024TUS123079

PATIENT
  Age: 59 Year
  Sex: Male

DRUGS (3)
  1. VEDOLIZUMAB [Suspect]
     Active Substance: VEDOLIZUMAB
     Indication: Crohn^s disease
  2. VEDOLIZUMAB [Suspect]
     Active Substance: VEDOLIZUMAB
     Dosage: 300 MILLIGRAM, Q4WEEKS
     Dates: start: 20240422
  3. PREDNISONE [Concomitant]
     Active Substance: PREDNISONE

REACTIONS (5)
  - Lower respiratory tract infection [Unknown]
  - COVID-19 [Recovering/Resolving]
  - Off label use [Unknown]
  - Asthenia [Unknown]
  - Influenza [Unknown]

NARRATIVE: CASE EVENT DATE: 20240422
